FAERS Safety Report 7359501-9 (Version None)
Quarter: 2011Q1

REPORT INFORMATION
  Report Type: 
  Country: None (occurrence: None)
  Receive Date: 20110317
  Receipt Date: 20091217
  Transmission Date: 20110831
  Serious: No
  Sender: FDA-Public Use
  Company Number: US-PFIZER INC-2009292629

PATIENT

DRUGS (4)
  1. LIPITOR [Suspect]
     Dosage: UNK
  2. AMLODIPINE BESYLATE [Suspect]
     Dosage: UNK
  3. DOXAZOSIN MESYLATE [Suspect]
  4. VITAMINS NOS [Suspect]
     Dosage: UNK

REACTIONS (1)
  - MYALGIA [None]
